FAERS Safety Report 6604399-7 (Version None)
Quarter: 2010Q1

REPORT INFORMATION
  Report Type: 
  Country: None (occurrence: None)
  Receive Date: 20100226
  Receipt Date: 20090922
  Transmission Date: 20100710
  Serious: Yes (Other)
  Sender: FDA-Public Use
  Company Number: A0808474A

PATIENT
  Age: 68 Year
  Sex: Female

DRUGS (10)
  1. LAMICTAL CD [Suspect]
     Indication: DEPRESSION
     Dosage: 50MG PER DAY
     Route: 048
     Dates: start: 20090807
  2. RITALIN [Concomitant]
  3. BUSPAR [Concomitant]
  4. SYNTHROID [Concomitant]
  5. ZESTRIL [Concomitant]
  6. EFFEXOR [Concomitant]
  7. NORVASC [Concomitant]
  8. SANCTURA [Concomitant]
  9. OXYCONTIN [Concomitant]
  10. ASPIRIN [Concomitant]

REACTIONS (2)
  - ALOPECIA [None]
  - HALLUCINATION [None]
